FAERS Safety Report 13901256 (Version 1)
Quarter: 2017Q3

REPORT INFORMATION
  Report Type: Report from Study
  Country: US (occurrence: US)
  Receive Date: 20170824
  Receipt Date: 20170824
  Transmission Date: 20171127
  Serious: Yes (Other)
  Sender: FDA-Public Use
  Company Number: US-JNJFOC-20160500488

PATIENT
  Age: 66 Year
  Sex: Female

DRUGS (8)
  1. IMBRUVICA [Suspect]
     Active Substance: IBRUTINIB
     Indication: CHRONIC LYMPHOCYTIC LEUKAEMIA
     Route: 048
     Dates: start: 20160411, end: 2016
  2. METAMUCIL [Concomitant]
     Active Substance: PLANTAGO SEED
  3. TOPROL XL [Concomitant]
     Active Substance: METOPROLOL SUCCINATE
  4. MULTIVITAMINS [Concomitant]
     Active Substance: VITAMINS
  5. ASPIRIN. [Concomitant]
     Active Substance: ASPIRIN
  6. LEXAPRO [Concomitant]
     Active Substance: ESCITALOPRAM OXALATE
  7. CALCIUM [Concomitant]
     Active Substance: CALCIUM
  8. HCTZ [Concomitant]
     Active Substance: HYDROCHLOROTHIAZIDE

REACTIONS (18)
  - Arthralgia [Unknown]
  - Platelet count decreased [Unknown]
  - Nervous system disorder [Unknown]
  - Hypertension [Not Recovered/Not Resolved]
  - Ovarian cancer [Unknown]
  - Balance disorder [Not Recovered/Not Resolved]
  - Myalgia [Recovering/Resolving]
  - Haematoma [Recovering/Resolving]
  - Peripheral swelling [Recovering/Resolving]
  - Urinary tract infection [Not Recovered/Not Resolved]
  - Skin mass [Recovering/Resolving]
  - Localised infection [Not Recovered/Not Resolved]
  - Fall [Recovering/Resolving]
  - Foot fracture [Unknown]
  - Fatigue [Not Recovered/Not Resolved]
  - Muscle spasms [Not Recovered/Not Resolved]
  - Onychoclasis [Not Recovered/Not Resolved]
  - Limb injury [Recovering/Resolving]

NARRATIVE: CASE EVENT DATE: 2016
